FAERS Safety Report 10152060 (Version 1)
Quarter: 2014Q2

REPORT INFORMATION
  Report Type: Spontaneous
  Country: US (occurrence: US)
  Receive Date: 20140505
  Receipt Date: 20140505
  Transmission Date: 20141212
  Serious: No
  Sender: FDA-Public Use
  Company Number: US-BRISTOL-MYERS SQUIBB COMPANY-20551644

PATIENT
  Sex: Female

DRUGS (1)
  1. FARXIGA [Suspect]
     Route: 048
     Dates: start: 20140209

REACTIONS (4)
  - Oropharyngeal pain [Unknown]
  - Dysuria [Unknown]
  - Blood glucose increased [Unknown]
  - Glycosylated haemoglobin increased [Unknown]
